FAERS Safety Report 6820609-5 (Version None)
Quarter: 2010Q3

REPORT INFORMATION
  Report Type: 
  Country: None (occurrence: None)
  Receive Date: 20100707
  Receipt Date: 20100628
  Transmission Date: 20110219
  Serious: Yes (Life-Threatening, Hospitalization)
  Sender: FDA-Public Use
  Company Number: RU-ABBOTT-10P-251-0649836-00

PATIENT
  Sex: Male
  Weight: 62 kg

DRUGS (6)
  1. RITONAVIR SOFT GELATIN CAPSULES [Suspect]
     Indication: HIV INFECTION
     Route: 048
     Dates: start: 20060419, end: 20100609
  2. RITONAVIR SOFT GELATIN CAPSULES [Suspect]
     Route: 048
     Dates: start: 20100612
  3. TMC114 [Concomitant]
     Indication: HIV INFECTION
     Route: 048
     Dates: start: 20060419, end: 20100609
  4. TMC114 [Concomitant]
     Route: 048
     Dates: start: 20100612
  5. COMBIVIR [Concomitant]
     Indication: HIV INFECTION
     Route: 048
     Dates: start: 20100318, end: 20100608
  6. COMBIVIR [Concomitant]
     Route: 048
     Dates: start: 20100612

REACTIONS (1)
  - MYOCARDIAL INFARCTION [None]
